FAERS Safety Report 18477651 (Version 4)
Quarter: 2021Q3

REPORT INFORMATION
  Report Type: Other
  Country: CA (occurrence: CA)
  Receive Date: 20201107
  Receipt Date: 20210706
  Transmission Date: 20211014
  Serious: Yes (Other)
  Sender: FDA-Public Use
  Company Number: CA-CELLTRION INC.-2020CA030390

PATIENT

DRUGS (15)
  1. RITUXIMAB (UNKNOWN) [Suspect]
     Active Substance: RITUXIMAB
     Indication: RHEUMATOID ARTHRITIS
     Dosage: 1000 MG
     Route: 042
  2. LOSEC [Concomitant]
     Active Substance: OMEPRAZOLE
  3. METHYLPREDNISOLONE SODIUM SUCCINATE. [Concomitant]
     Active Substance: METHYLPREDNISOLONE SODIUM SUCCINATE
     Indication: PREMEDICATION
     Dosage: 100 MG
     Route: 042
  4. PREDNISONE. [Concomitant]
     Active Substance: PREDNISONE
  5. LACTULOSE. [Concomitant]
     Active Substance: LACTULOSE
  6. COLCHICINE. [Concomitant]
     Active Substance: COLCHICINE
  7. DUTASTERIDE. [Concomitant]
     Active Substance: DUTASTERIDE
  8. ACETAMINOPHEN;OXYCODONE HYDROCHLORIDE [Concomitant]
     Active Substance: ACETAMINOPHEN\OXYCODONE HYDROCHLORIDE
  9. PROLIA [Concomitant]
     Active Substance: DENOSUMAB
  10. SALMETEROL XINAFOATE [Concomitant]
     Active Substance: SALMETEROL XINAFOATE
  11. SYNTHROID [Concomitant]
     Active Substance: LEVOTHYROXINE SODIUM
  12. BENADRYL [Concomitant]
     Active Substance: DIPHENHYDRAMINE HYDROCHLORIDE
     Indication: PREMEDICATION
     Dosage: 50 MG
     Route: 048
  13. TYLENOL [Concomitant]
     Active Substance: ACETAMINOPHEN
     Dosage: 650 MG
     Route: 048
  14. IRBESARTAN. [Concomitant]
     Active Substance: IRBESARTAN
     Route: 065
  15. RAPAFLO [Concomitant]
     Active Substance: SILODOSIN

REACTIONS (11)
  - Infusion related reaction [Unknown]
  - Blood pressure diastolic decreased [Unknown]
  - Blood pressure systolic increased [Unknown]
  - Oxygen saturation decreased [Unknown]
  - Intentional product use issue [Unknown]
  - Blood pressure systolic abnormal [Unknown]
  - Blood pressure fluctuation [Unknown]
  - Off label use [Unknown]
  - Aortic aneurysm [Unknown]
  - Blood pressure diastolic abnormal [Unknown]
  - Subdural haematoma [Unknown]
